FAERS Safety Report 7301942-X (Version None)
Quarter: 2011Q1

REPORT INFORMATION
  Report Type: 
  Country: None (occurrence: None)
  Receive Date: 20110218
  Receipt Date: 20110209
  Transmission Date: 20110831
  Serious: Yes (Life-Threatening, Other)
  Sender: FDA-Public Use
  Company Number: JP-ROCHE-759583

PATIENT
  Age: 45 Year
  Sex: Male
  Weight: 78 kg

DRUGS (7)
  1. AVASTIN [Suspect]
     Indication: RECTAL CANCER METASTATIC
     Route: 041
     Dates: start: 20100401, end: 20100901
  2. FLUOROURACIL [Concomitant]
     Dosage: DOSAGE IS UNCERTAIN
     Route: 040
     Dates: start: 20100401, end: 20100901
  3. LEVOFOLINATE [Concomitant]
     Dosage: DOSAGE IS UNCERTAIN
     Route: 041
     Dates: start: 20100401, end: 20100901
  4. AVASTIN [Suspect]
     Route: 041
     Dates: start: 20100901, end: 20101201
  5. IRINOTECAN HYDROCHLORIDE [Concomitant]
     Dosage: DOSAGE IS UNCERTAIN
     Route: 041
     Dates: start: 20100401, end: 20100901
  6. GASTER [Concomitant]
     Route: 048
     Dates: start: 20090301, end: 20110101
  7. XELODA [Suspect]
     Indication: RECTAL CANCER METASTATIC
     Route: 048
     Dates: start: 20100901, end: 20101201

REACTIONS (5)
  - ILEAL PERFORATION [None]
  - LARGE INTESTINE PERFORATION [None]
  - PERITONITIS [None]
  - HAEMATOTOXICITY [None]
  - RECTAL PERFORATION [None]
